FAERS Safety Report 7092498-8 (Version None)
Quarter: 2010Q4

REPORT INFORMATION
  Report Type: 
  Country: None (occurrence: None)
  Receive Date: 20101108
  Receipt Date: 20101108
  Transmission Date: 20110411
  Serious: Yes (Other)
  Sender: FDA-Public Use
  Company Number: None

PATIENT
  Sex: Male
  Weight: 101 kg

DRUGS (1)
  1. ZYRTEC [Suspect]
     Indication: PRURITUS
     Dosage: 1 TABLET DAILY PO
     Route: 048
     Dates: start: 20030701, end: 20101101

REACTIONS (2)
  - INSOMNIA [None]
  - RASH [None]
